FAERS Safety Report 18274982 (Version 6)
Quarter: 2023Q4

REPORT INFORMATION
  Report Type: Spontaneous
  Country: US (occurrence: US)
  Receive Date: 20200916
  Receipt Date: 20231130
  Transmission Date: 20240109
  Serious: Yes (Death)
  Sender: FDA-Public Use
  Company Number: US-PFIZER INC-2019500864

PATIENT
  Age: 69 Year
  Sex: Female
  Weight: 55.34 kg

DRUGS (4)
  1. XALKORI [Suspect]
     Active Substance: CRIZOTINIB
     Indication: Lung neoplasm malignant
     Dosage: 200 MG, DAILY (1 TAB PO (PER ORAL) DAILY)
     Route: 048
  2. XALKORI [Suspect]
     Active Substance: CRIZOTINIB
     Dosage: UNK, 2X/DAY (200 TWICE A DAY ONE IN MORNING ONE AT NIGHT)
     Route: 048
     Dates: start: 2012
  3. XALKORI [Suspect]
     Active Substance: CRIZOTINIB
     Dosage: 200 MG, 2X/DAY
     Route: 048
  4. XALKORI [Suspect]
     Active Substance: CRIZOTINIB
     Dosage: 200 MG
     Dates: start: 20230419

REACTIONS (4)
  - Death [Fatal]
  - Neoplasm progression [Unknown]
  - Hypoacusis [Not Recovered/Not Resolved]
  - Off label use [Unknown]

NARRATIVE: CASE EVENT DATE: 20120101
